FAERS Safety Report 22011064 (Version 1)
Quarter: 2023Q1

REPORT INFORMATION
  Report Type: Spontaneous
  Country: US (occurrence: US)
  Receive Date: 20230220
  Receipt Date: 20230220
  Transmission Date: 20230417
  Serious: No
  Sender: FDA-Public Use
  Company Number: US-SA-SAC20230216000870

PATIENT
  Age: 85 Year
  Sex: Female

DRUGS (1)
  1. AUBAGIO [Suspect]
     Active Substance: TERIFLUNOMIDE
     Indication: Multiple sclerosis
     Dosage: 14 MG, QD
     Route: 048

REACTIONS (5)
  - Facial discomfort [Unknown]
  - Limb injury [Recovering/Resolving]
  - Vertigo [Unknown]
  - Dysgraphia [Unknown]
  - Surgery [Unknown]

NARRATIVE: CASE EVENT DATE: 20230214
